FAERS Safety Report 17453658 (Version 1)
Quarter: 2020Q1

REPORT INFORMATION
  Report Type: Spontaneous
  Country: None (occurrence: US)
  Receive Date: 20200224
  Receipt Date: 20200224
  Transmission Date: 20200409
  Serious: No
  Sender: FDA-Public Use
  Company Number: US-VYERA PHARMACEUTICALS, LLC-2019VYE00040

PATIENT
  Age: 56 Year
  Sex: Male

DRUGS (2)
  1. DARAPRIM [Suspect]
     Active Substance: PYRIMETHAMINE
     Dosage: 50 MG, 1X/DAY
     Route: 048
     Dates: start: 20190906
  2. DARAPRIM [Suspect]
     Active Substance: PYRIMETHAMINE
     Indication: EYE INFECTION TOXOPLASMAL
     Dosage: 50 MG, 2X/DAY FOR 1 WEEK
     Route: 048
     Dates: start: 20190830, end: 20190905

REACTIONS (3)
  - Nausea [Unknown]
  - Decreased appetite [Unknown]
  - Vomiting [Unknown]

NARRATIVE: CASE EVENT DATE: 201908
